FAERS Safety Report 24083777 (Version 6)
Quarter: 2025Q3

REPORT INFORMATION
  Report Type: Report from Study
  Country: CA (occurrence: CA)
  Receive Date: 20240712
  Receipt Date: 20250911
  Transmission Date: 20251020
  Serious: Yes (Hospitalization, Other)
  Sender: TAKEDA
  Company Number: CA-TAKEDA-2024TUS070907

PATIENT
  Sex: Female

DRUGS (5)
  1. VEDOLIZUMAB [Suspect]
     Active Substance: VEDOLIZUMAB
     Indication: Colitis ulcerative
  2. VEDOLIZUMAB [Suspect]
     Active Substance: VEDOLIZUMAB
  3. VEDOLIZUMAB [Suspect]
     Active Substance: VEDOLIZUMAB
  4. VEDOLIZUMAB [Suspect]
     Active Substance: VEDOLIZUMAB
  5. Cortiment [Concomitant]

REACTIONS (7)
  - Myocardial infarction [Unknown]
  - Anxiety [Unknown]
  - Chronic obstructive pulmonary disease [Not Recovered/Not Resolved]
  - Gout [Unknown]
  - Peripheral swelling [Unknown]
  - Pneumonia [Recovering/Resolving]
  - Dehydration [Recovered/Resolved]
